FAERS Safety Report 6474304-5 (Version None)
Quarter: 2009Q4

REPORT INFORMATION
  Report Type: 
  Country: None (occurrence: None)
  Receive Date: 20091204
  Receipt Date: 20091202
  Transmission Date: 20100525
  Serious: Yes (Death, Life-Threatening, Hospitalization, Other)
  Sender: FDA-Public Use
  Company Number: PHHY2009JP34291

PATIENT
  Sex: Male
  Weight: 54 kg

DRUGS (8)
  1. ZOMETA [Suspect]
     Indication: METASTASES TO BONE
     Dosage: 4MG EVERY FOUR WEEKS
     Route: 042
     Dates: start: 20080826
  2. AVASTIN [Concomitant]
     Dosage: UNK
     Route: 042
     Dates: start: 20081105
  3. CALCIUM LEVOFOLINATE [Concomitant]
     Dosage: UNK
     Route: 042
     Dates: start: 20080819
  4. OXALIPLATIN [Concomitant]
     Dosage: UNK
     Route: 042
     Dates: start: 20080819, end: 20090318
  5. FLUOROURACIL [Concomitant]
     Dosage: UNK
     Route: 042
     Dates: start: 20080819
  6. IRINOTECAN HYDROCHLORIDE [Concomitant]
     Dosage: UNK
     Route: 042
     Dates: start: 20090401
  7. FOLFIRI [Concomitant]
  8. CHEMOTHERAPEUTICS NOS [Concomitant]

REACTIONS (14)
  - BACK PAIN [None]
  - CYSTITIS INTERSTITIAL [None]
  - DEATH [None]
  - DECREASED APPETITE [None]
  - DISEASE PROGRESSION [None]
  - GENERAL PHYSICAL HEALTH DETERIORATION [None]
  - HAEMATURIA [None]
  - HYPOCALCAEMIA [None]
  - HYPOPHAGIA [None]
  - HYPOPHOSPHATAEMIA [None]
  - MALAISE [None]
  - PAIN [None]
  - PLATELET COUNT DECREASED [None]
  - PYREXIA [None]
